FAERS Safety Report 6170560-1 (Version None)
Quarter: 2009Q2

REPORT INFORMATION
  Report Type: 
  Country: None (occurrence: None)
  Receive Date: 20090428
  Receipt Date: 20090415
  Transmission Date: 20091009
  Serious: Yes (Disabling)
  Sender: FDA-Public Use
  Company Number: US-ELI_LILLY_AND_COMPANY-US200904004246

PATIENT
  Sex: Female
  Weight: 66.667 kg

DRUGS (21)
  1. FORTEO [Suspect]
     Indication: OSTEOPOROSIS
     Dosage: 20 UG, DAILY (1/D)
     Dates: start: 20050701, end: 20070301
  2. FORTEO [Suspect]
     Dosage: 20 UG, DAILY (1/D)
     Dates: start: 20071201
  3. FORTEO [Suspect]
     Dosage: 20 UG, DAILY (1/D)
     Dates: end: 20080301
  4. NEURONTIN [Concomitant]
     Indication: PAIN IN EXTREMITY
     Dosage: 600 MG, 3/D
  5. NEURONTIN [Concomitant]
     Dosage: 600 MG, 2/D
  6. NEURONTIN [Concomitant]
     Dosage: 100 MG, 3/D
     Dates: start: 20070501, end: 20070601
  7. NEURONTIN [Concomitant]
     Dosage: 300 MG, 3/D
     Dates: start: 20070601
  8. NEURONTIN [Concomitant]
     Dosage: 600 MG, 3/D
     Dates: start: 20070601, end: 20070629
  9. NEURONTIN [Concomitant]
     Dosage: 1200 MG, 3/D
     Dates: start: 20070901
  10. PERCOCET [Concomitant]
     Indication: PAIN IN EXTREMITY
     Dosage: 5 UNK, AS NEEDED
  11. PERCOCET [Concomitant]
     Dosage: 5/325, ONE TABLET
  12. PERCOCET [Concomitant]
     Dosage: 50/50
     Dates: start: 20070615
  13. PERCOCET [Concomitant]
     Dosage: 10/650
     Dates: start: 20070701, end: 20070701
  14. PERCOCET [Concomitant]
     Dosage: 5 PER 325 MG
     Dates: start: 20070701
  15. XANAX [Concomitant]
     Dosage: 0.5 UNK, 4/D
  16. XANAX [Concomitant]
     Dosage: 0.5 MG, 4/D
     Dates: start: 20071101
  17. DILAUDID [Concomitant]
     Indication: PAIN
     Dosage: UNK, UNK
     Route: 048
     Dates: start: 20070501, end: 20070503
  18. DILAUDID [Concomitant]
     Dosage: TWO OR THREE
     Dates: start: 20070501
  19. DILAUDID [Concomitant]
     Dosage: 4 MG, AS NEEDED
     Route: 048
  20. DILAUDID [Concomitant]
     Dosage: 4 MG, EVERY 4 HRS
     Dates: start: 20070901
  21. LASIX [Concomitant]
     Dosage: 20 MG, DAILY (1/D)
     Route: 048
     Dates: start: 20080601

REACTIONS (16)
  - AORTIC ARTERIOSCLEROSIS [None]
  - ASPARTATE AMINOTRANSFERASE DECREASED [None]
  - BLOOD CREATINE PHOSPHOKINASE DECREASED [None]
  - CONFUSIONAL STATE [None]
  - FALL [None]
  - FEELING OF BODY TEMPERATURE CHANGE [None]
  - GAIT DISTURBANCE [None]
  - INFECTION [None]
  - INTERVERTEBRAL DISC DEGENERATION [None]
  - JOINT SWELLING [None]
  - MUSCLE ATROPHY [None]
  - NERVOUSNESS [None]
  - NEUROPATHY PERIPHERAL [None]
  - PAIN IN EXTREMITY [None]
  - SKIN ULCER [None]
  - SPINAL COLUMN STENOSIS [None]
